FAERS Safety Report 14512470 (Version 1)
Quarter: 2018Q1

REPORT INFORMATION
  Report Type: Spontaneous
  Country: US (occurrence: US)
  Receive Date: 20180209
  Receipt Date: 20180209
  Transmission Date: 20180509
  Serious: No
  Sender: FDA-Public Use
  Company Number: US-ALLERGAN-1716851US

PATIENT
  Age: 55 Year
  Sex: Female

DRUGS (2)
  1. RESTASIS [Suspect]
     Active Substance: CYCLOSPORINE
     Indication: DRY EYE
     Dosage: 2 GTT, BID
     Route: 047
     Dates: start: 20170327, end: 20170409
  2. RESTASIS [Suspect]
     Active Substance: CYCLOSPORINE
     Dosage: 2 GTT, BID
     Route: 047
     Dates: start: 20170423, end: 20170424

REACTIONS (6)
  - Rhinorrhoea [Recovered/Resolved]
  - Dysphonia [Recovered/Resolved]
  - Throat irritation [Recovered/Resolved]
  - Oropharyngeal pain [Recovered/Resolved]
  - Deafness [Recovered/Resolved]
  - Middle ear effusion [Not Recovered/Not Resolved]

NARRATIVE: CASE EVENT DATE: 2017
